FAERS Safety Report 15106121 (Version 1)
Quarter: 2018Q3

REPORT INFORMATION
  Report Type: Spontaneous
  Country: FR (occurrence: FR)
  Receive Date: 20180704
  Receipt Date: 20180704
  Transmission Date: 20181010
  Serious: Yes (Hospitalization)
  Sender: FDA-Public Use
  Company Number: FR-AMGEN-FRASP2018088273

PATIENT
  Age: 20 Year
  Sex: Female
  Weight: 99 kg

DRUGS (1)
  1. NPLATE [Suspect]
     Active Substance: ROMIPLOSTIM
     Indication: IMMUNE THROMBOCYTOPENIC PURPURA
     Dosage: 500 MUG, UNK
     Route: 058
     Dates: start: 20171205, end: 201804

REACTIONS (2)
  - Condition aggravated [Recovering/Resolving]
  - Antiphospholipid syndrome [Recovering/Resolving]

NARRATIVE: CASE EVENT DATE: 201803
